FAERS Safety Report 8764384 (Version 3)
Quarter: 2012Q4

REPORT INFORMATION
  Report Type: 
  Country: US (occurrence: US)
  Receive Date: 20120831
  Receipt Date: 20121220
  Transmission Date: 20130627
  Serious: Yes (Hospitalization, Disabling, Other)
  Sender: FDA-Public Use
  Company Number: US-009507513-1205USA04993

PATIENT

DRUGS (14)
  1. FOSAMAX [Suspect]
     Indication: OSTEOPENIA
     Dosage: 70 mg, qw
     Route: 048
     Dates: start: 200201, end: 201012
  2. CALCIUM CITRATE [Concomitant]
     Dosage: UNK
     Dates: start: 1995
  3. VITAMINS (UNSPECIFIED) [Concomitant]
     Dosage: UNK, qd
     Route: 048
     Dates: start: 1995
  4. PYRIDOXINE [Concomitant]
     Dosage: 100-200 mg qd
     Dates: start: 1995
  5. CYANOCOBALAMIN [Concomitant]
     Dosage: 250-1000 mcg qd
     Dates: start: 1995
  6. OMEGA-3 MARINE TRIGLYCERIDES [Concomitant]
     Dosage: 1000-2000 mg qd
     Route: 048
  7. LEFLUNOMIDE [Concomitant]
     Indication: RHEUMATOID ARTHRITIS
     Dosage: 10 mg, qd
  8. MAXIDE [Concomitant]
     Indication: HYPERTENSION
     Dosage: 37.5/25 mg qd
  9. HYDROCHLOROTHIAZIDE (+) TRIAMTERENE [Concomitant]
     Indication: HYPERTENSION
     Dosage: 37.5/25 mg qd
  10. ARAVA [Concomitant]
     Indication: RHEUMATOID ARTHRITIS
     Dosage: 10 mg, qd
  11. PLAQUENIL [Concomitant]
     Indication: RHEUMATOID ARTHRITIS
  12. DIAZIDE (HYDROCHLOROTHIAZIDE (+) TRIAMTERENE) [Concomitant]
     Indication: HYPERTENSION
     Dosage: 37.5/25 mg qd
  13. METHOTREXATE [Concomitant]
  14. AZULFIDINE [Concomitant]

REACTIONS (69)
  - Femur fracture [Not Recovered/Not Resolved]
  - Open reduction of fracture [Unknown]
  - Chest pain [Not Recovered/Not Resolved]
  - Femur fracture [Not Recovered/Not Resolved]
  - Osteoporosis [Not Recovered/Not Resolved]
  - Stress fracture [Not Recovered/Not Resolved]
  - Bunion operation [Unknown]
  - Bunion [Unknown]
  - Endometrial adenocarcinoma [Unknown]
  - Cholecystectomy [Unknown]
  - Tarsal tunnel decompression [Unknown]
  - Renal failure [Unknown]
  - Foot operation [Unknown]
  - Dyspepsia [Not Recovered/Not Resolved]
  - Back pain [Not Recovered/Not Resolved]
  - Osteonecrosis of jaw [Not Recovered/Not Resolved]
  - Musculoskeletal pain [Not Recovered/Not Resolved]
  - Salpingo-oophorectomy bilateral [Unknown]
  - Hysterectomy [Unknown]
  - Anxiety [Unknown]
  - Hyperhidrosis [Unknown]
  - Melanocytic naevus [Unknown]
  - Seborrhoeic keratosis [Unknown]
  - Hyperkeratosis [Unknown]
  - Bladder disorder [Unknown]
  - Hyperlipidaemia [Unknown]
  - Patellofemoral pain syndrome [Unknown]
  - Hyperkeratosis [Unknown]
  - Eczema [Unknown]
  - Renal cyst [Unknown]
  - Synovial disorder [Unknown]
  - Oropharyngeal pain [Unknown]
  - Herpes simplex [Unknown]
  - Carpal tunnel syndrome [Unknown]
  - Restless legs syndrome [Unknown]
  - Nasal congestion [Unknown]
  - Fungal infection [Unknown]
  - Hypokalaemia [Unknown]
  - Peripheral sensory neuropathy [Unknown]
  - Tarsal tunnel syndrome [Unknown]
  - Foot fracture [Unknown]
  - Spinal osteoarthritis [Unknown]
  - Haematuria [Unknown]
  - Laboratory test abnormal [Unknown]
  - Urinary tract infection [Unknown]
  - Bronchitis [Unknown]
  - Tachycardia [Unknown]
  - Pharyngitis [Unknown]
  - Acute sinusitis [Unknown]
  - Cough [Unknown]
  - Endometriosis [Unknown]
  - Peripheral sensory neuropathy [Unknown]
  - Pollakiuria [Unknown]
  - Neuropathy peripheral [Unknown]
  - Skin lesion [Unknown]
  - Skin lesion [Unknown]
  - Spinal osteoarthritis [Unknown]
  - Depression [Unknown]
  - Scotoma [Unknown]
  - Sinus disorder [Unknown]
  - Eye pain [Unknown]
  - Cough [Unknown]
  - Arthralgia [Unknown]
  - Drug ineffective [Unknown]
  - Gastrooesophageal reflux disease [Unknown]
  - Oedema peripheral [Unknown]
  - Diarrhoea [Unknown]
  - Headache [Unknown]
  - Drug ineffective [Unknown]
